FAERS Safety Report 24753527 (Version 1)
Quarter: 2024Q4

REPORT INFORMATION
  Report Type: Spontaneous
  Country: RU (occurrence: RU)
  Receive Date: 20241219
  Receipt Date: 20241219
  Transmission Date: 20250115
  Serious: Yes (Other)
  Sender: ROCHE
  Company Number: RU-ROCHE-10000156924

PATIENT
  Age: 11 Year

DRUGS (1)
  1. EMICIZUMAB [Suspect]
     Active Substance: EMICIZUMAB
     Indication: Factor VIII deficiency
     Dosage: 1.5MG/KG
     Route: 065
     Dates: start: 2021

REACTIONS (2)
  - Respiratory tract infection viral [Unknown]
  - Adenoiditis [Unknown]
